FAERS Safety Report 11791262 (Version 1)
Quarter: 2015Q4

REPORT INFORMATION
  Report Type: Spontaneous
  Country: US (occurrence: US)
  Receive Date: 20151201
  Receipt Date: 20151201
  Transmission Date: 20160305
  Serious: Yes (Hospitalization)
  Sender: FDA-Public Use
  Company Number: US-CELGENE-USA-2015116004

PATIENT
  Sex: Male

DRUGS (1)
  1. THALOMID [Suspect]
     Active Substance: THALIDOMIDE
     Indication: PYODERMA GANGRENOSUM
     Dosage: 100 MILLIGRAM
     Route: 048
     Dates: start: 201509

REACTIONS (3)
  - Sepsis [Unknown]
  - Crohn^s disease [Unknown]
  - Wound infection [Unknown]

NARRATIVE: CASE EVENT DATE: 2015
